FAERS Safety Report 5189216-7 (Version None)
Quarter: 2006Q4

REPORT INFORMATION
  Report Type: 
  Country: None (occurrence: None)
  Receive Date: 20061215
  Receipt Date: 20061204
  Transmission Date: 20070319
  Serious: Yes (Other)
  Sender: FDA-Public Use
  Company Number: 2006127406

PATIENT
  Age: 80 Year
  Weight: 65.7716 kg

DRUGS (1)
  1. ZITHROMAX [Suspect]
     Indication: BRONCHIAL DISORDER
     Dosage: 500 MG (250 MG, 2 IN 1 D), ORAL
     Route: 048
     Dates: start: 20061017

REACTIONS (6)
  - BODY TEMPERATURE INCREASED [None]
  - DRUG INEFFECTIVE [None]
  - INCORRECT DOSE ADMINISTERED [None]
  - NASAL CONGESTION [None]
  - POLLAKIURIA [None]
  - TREATMENT NONCOMPLIANCE [None]
